FAERS Safety Report 24167603 (Version 4)
Quarter: 2025Q1

REPORT INFORMATION
  Report Type: Other
  Country: CA (occurrence: CA)
  Receive Date: 20240802
  Receipt Date: 20250210
  Transmission Date: 20250409
  Serious: No
  Sender: TOLMAR
  Company Number: CA-TOLMAR, INC.-24CA050989

PATIENT
  Age: 61 Year
  Sex: Male

DRUGS (4)
  1. ELIGARD [Suspect]
     Active Substance: LEUPROLIDE ACETATE
     Indication: Prostate cancer
     Dosage: 7.5 MILLIGRAM, Q 1 MONTH
     Route: 058
     Dates: start: 20240710
  2. ELIGARD [Suspect]
     Active Substance: LEUPROLIDE ACETATE
     Dosage: 7.5 MILLIGRAM, Q 1 MONTH
     Route: 058
     Dates: start: 20240807
  3. ELIGARD [Suspect]
     Active Substance: LEUPROLIDE ACETATE
     Indication: Prostate cancer
     Dosage: 22.5 MILLIGRAM, Q 3 MONTH
     Route: 058
     Dates: start: 20240903
  4. ELIGARD [Suspect]
     Active Substance: LEUPROLIDE ACETATE
     Indication: Prostate cancer

REACTIONS (17)
  - Dry eye [Unknown]
  - Anxiety [Not Recovered/Not Resolved]
  - Muscle rigidity [Unknown]
  - Muscle tightness [Unknown]
  - Sleep disorder [Unknown]
  - Dizziness exertional [Recovered/Resolved]
  - Mood swings [Unknown]
  - Muscular weakness [Unknown]
  - Crying [Unknown]
  - Dry mouth [Not Recovered/Not Resolved]
  - Injection site pain [Recovered/Resolved]
  - Insomnia [Unknown]
  - Hot flush [Unknown]
  - Hyperhidrosis [Unknown]
  - Fatigue [Unknown]
  - Weight increased [Unknown]
  - Depressed mood [Unknown]

NARRATIVE: CASE EVENT DATE: 20240710
